FAERS Safety Report 7494971-7 (Version None)
Quarter: 2011Q2

REPORT INFORMATION
  Report Type: 
  Country: None (occurrence: None)
  Receive Date: 20110520
  Receipt Date: 20110504
  Transmission Date: 20111010
  Serious: No
  Sender: FDA-Public Use
  Company Number: US-B.I. PHARMACEUTICALS,INC./RIDGEFIELD-2011-BP-03007BP

PATIENT
  Sex: Male

DRUGS (5)
  1. OXYGEN [Concomitant]
     Indication: DYSPNOEA
  2. ALBUTEROL [Concomitant]
     Indication: CHRONIC OBSTRUCTIVE PULMONARY DISEASE
  3. SYMBICORT [Concomitant]
     Indication: DYSPNOEA
  4. ALBUTER SULFATE NEB [Concomitant]
     Indication: DYSPNOEA
  5. SPIRIVA [Suspect]
     Indication: CHRONIC OBSTRUCTIVE PULMONARY DISEASE
     Dosage: 18 MCG
     Route: 055
     Dates: start: 20050501

REACTIONS (1)
  - PROSTATOMEGALY [None]
